FAERS Safety Report 7657411-0 (Version None)
Quarter: 2011Q3

REPORT INFORMATION
  Report Type: 
  Country: None (occurrence: None)
  Receive Date: 20110804
  Receipt Date: 20110620
  Transmission Date: 20111222
  Serious: No
  Sender: FDA-Public Use
  Company Number: US-ASTRAZENECA-2011SE37338

PATIENT
  Age: 49 Year
  Sex: Male

DRUGS (7)
  1. CELEBREX [Concomitant]
  2. LEVOTHYROXINE SODIUM [Concomitant]
  3. VANDETANIB [Suspect]
     Indication: THYROID CANCER
     Route: 048
     Dates: start: 20110606
  4. CALCIUM 500 [Concomitant]
  5. HYDREA [Concomitant]
  6. MULTI-VITAMIN [Concomitant]
  7. OXYCONTIN [Concomitant]

REACTIONS (1)
  - PHOTOPSIA [None]
